FAERS Safety Report 10528989 (Version 1)
Quarter: 2014Q4

REPORT INFORMATION
  Report Type: Spontaneous
  Country: US (occurrence: None)
  Receive Date: 20141016
  Receipt Date: 20141016
  Transmission Date: 20150528
  Serious: Yes (Hospitalization)
  Sender: FDA-Public Use
  Company Number: None

PATIENT
  Age: 4 Year
  Sex: Male
  Weight: 20 kg

DRUGS (5)
  1. METHOTREXATE [Suspect]
     Active Substance: METHOTREXATE
     Dates: end: 20140912
  2. DAUNORUBICIN [Suspect]
     Active Substance: DAUNORUBICIN
     Dates: end: 20140919
  3. ONCASPAR [Suspect]
     Active Substance: PEGASPARGASE
     Dates: end: 20140908
  4. DEXAMETHASONE. [Suspect]
     Active Substance: DEXAMETHASONE
     Dates: end: 20140918
  5. VINCRISTINE SULFATE. [Suspect]
     Active Substance: VINCRISTINE SULFATE
     Dates: end: 20140919

REACTIONS (13)
  - Zygomycosis [None]
  - Abdominal distension [None]
  - Pain in extremity [None]
  - Hypoglycaemia [None]
  - Seizure [None]
  - Pulmonary oedema [None]
  - Fluid overload [None]
  - Cardiopulmonary failure [None]
  - Acute kidney injury [None]
  - Respiratory tract infection fungal [None]
  - Neutropenia [None]
  - Ileus [None]
  - Oedema peripheral [None]

NARRATIVE: CASE EVENT DATE: 20140919
